FAERS Safety Report 12381651 (Version 1)
Quarter: 2016Q2

REPORT INFORMATION
  Report Type: Spontaneous
  Country: GB (occurrence: GB)
  Receive Date: 20160518
  Receipt Date: 20160518
  Transmission Date: 20160815
  Serious: Yes (Other)
  Sender: FDA-Public Use
  Company Number: GB-DRREDDYS-GER/UKI/16/0079620

PATIENT
  Age: 47 Year
  Sex: Male

DRUGS (7)
  1. CLOBAZAM [Interacting]
     Active Substance: CLOBAZAM
     Route: 048
     Dates: start: 20151030
  2. CARBAMAZEPINE. [Interacting]
     Active Substance: CARBAMAZEPINE
     Indication: EPILEPSY
     Route: 048
  3. ASPIRIN. [Concomitant]
     Active Substance: ASPIRIN
     Indication: PRODUCT USED FOR UNKNOWN INDICATION
     Route: 048
  4. COLESEVELAM [Concomitant]
     Active Substance: COLESEVELAM
     Indication: HYPERCHOLESTEROLAEMIA
     Dosage: 3 TABLETS
     Route: 048
  5. LEVETIRACETAM. [Suspect]
     Active Substance: LEVETIRACETAM
     Indication: EPILEPSY
     Route: 048
  6. CLOBAZAM [Interacting]
     Active Substance: CLOBAZAM
     Indication: EPILEPSY
  7. ROSUVASTATIN. [Concomitant]
     Active Substance: ROSUVASTATIN
     Indication: HYPERCHOLESTEROLAEMIA
     Dosage: AT NIGHT
     Route: 048

REACTIONS (2)
  - Skin discolouration [Not Recovered/Not Resolved]
  - Drug interaction [Unknown]
